FAERS Safety Report 13141707 (Version 1)
Quarter: 2017Q1

REPORT INFORMATION
  Report Type: Spontaneous
  Country: US (occurrence: US)
  Receive Date: 20170123
  Receipt Date: 20170123
  Transmission Date: 20170428
  Serious: No
  Sender: FDA-Public Use
  Company Number: US-009507513-1701USA004278

PATIENT
  Age: 63 Year
  Sex: Female
  Weight: 77.1 kg

DRUGS (14)
  1. QUETIAPINE FUMARATE. [Concomitant]
     Active Substance: QUETIAPINE FUMARATE
  2. CLONAZEPAM. [Concomitant]
     Active Substance: CLONAZEPAM
  3. LEVOTHYROXINE SODIUM. [Concomitant]
     Active Substance: LEVOTHYROXINE SODIUM
  4. HYDROXYZINE HYDROCHLORIDE. [Concomitant]
     Active Substance: HYDROXYZINE HYDROCHLORIDE
  5. INDERAL [Concomitant]
     Active Substance: PROPRANOLOL HYDROCHLORIDE
  6. GABAPENTIN. [Concomitant]
     Active Substance: GABAPENTIN
  7. BELSOMRA [Suspect]
     Active Substance: SUVOREXANT
     Dosage: SECOND DAY 20 MG, TAKE AS NEED
     Route: 048
  8. BELSOMRA [Suspect]
     Active Substance: SUVOREXANT
     Dosage: THIRD DAY 10 MG, TAKE AS NEEDED
     Route: 048
  9. VENLAFAXINE HYDROCHLORIDE. [Concomitant]
     Active Substance: VENLAFAXINE HYDROCHLORIDE
  10. MELATONIN [Concomitant]
     Active Substance: MELATONIN
  11. RANITIDINE. [Concomitant]
     Active Substance: RANITIDINE
  12. TRYPTOPHAN [Concomitant]
     Active Substance: TRYPTOPHAN
  13. VALERIAN [Concomitant]
     Active Substance: VALERIAN
  14. BELSOMRA [Suspect]
     Active Substance: SUVOREXANT
     Indication: INSOMNIA
     Dosage: FIRST DAY 10 MG, TAKE AS NEEDED
     Route: 048

REACTIONS (3)
  - Balance disorder [Unknown]
  - Dizziness [Unknown]
  - Drug ineffective [Recovered/Resolved]
